FAERS Safety Report 8997282 (Version 1)
Quarter: 2013Q1

REPORT INFORMATION
  Report Type: Spontaneous
  Country: US (occurrence: US)
  Receive Date: 20130104
  Receipt Date: 20130104
  Transmission Date: 20140127
  Serious: No
  Sender: FDA-Public Use
  Company Number: US-009507513-1301USA001453

PATIENT
  Age: 12 Year
  Sex: Male

DRUGS (2)
  1. CLARITIN [Suspect]
     Indication: HYPERSENSITIVITY
     Dosage: UNK, ONCE
     Route: 048
     Dates: start: 20121207
  2. CLARITIN [Suspect]
     Dosage: UNK, ONCE
     Route: 048
     Dates: start: 20121207

REACTIONS (1)
  - Inappropriate schedule of drug administration [Recovering/Resolving]
